FAERS Safety Report 25911872 (Version 1)
Quarter: 2025Q4

REPORT INFORMATION
  Report Type: Spontaneous
  Country: US (occurrence: US)
  Receive Date: 20251013
  Receipt Date: 20251013
  Transmission Date: 20260118
  Serious: No
  Sender: RANBAXY
  Company Number: US-SUN PHARMACEUTICAL INDUSTRIES LTD-2024R1-478491

PATIENT
  Sex: Female
  Weight: 90 kg

DRUGS (1)
  1. WINLEVI [Suspect]
     Active Substance: CLASCOTERONE
     Indication: Acne
     Dosage: 60 GRAM, BID
     Route: 065

REACTIONS (4)
  - Product physical consistency issue [Unknown]
  - Poor quality product administered [Unknown]
  - Condition aggravated [Unknown]
  - Drug ineffective [Unknown]
